FAERS Safety Report 9927695 (Version 1)
Quarter: 2014Q1

REPORT INFORMATION
  Report Type: Spontaneous
  Country: US (occurrence: US)
  Receive Date: 20140227
  Receipt Date: 20140227
  Transmission Date: 20141002
  Serious: Yes (Hospitalization, Other)
  Sender: FDA-Public Use
  Company Number: US-ASTRAZENECA-2014SE12265

PATIENT
  Age: 81 Year
  Sex: Male
  Weight: 93 kg

DRUGS (11)
  1. SYMBICORT [Suspect]
     Indication: CHRONIC OBSTRUCTIVE PULMONARY DISEASE
     Dosage: 80/4.5, 2 PUFFS BID
     Route: 055
  2. ATROPINE BROMIDE [Concomitant]
     Indication: CHRONIC OBSTRUCTIVE PULMONARY DISEASE
     Dosage: 1 VIAL QID
  3. COUMADIN [Concomitant]
     Indication: CARDIAC DISORDER
  4. CARVEDILOL [Concomitant]
     Indication: CARDIAC DISORDER
  5. ATORVASTATIN [Concomitant]
  6. LEVOTHYROXINE [Concomitant]
     Indication: THYROID DISORDER
  7. AMIODARONE [Concomitant]
     Indication: CARDIAC DISORDER
  8. SERTRALINE [Concomitant]
     Indication: DEPRESSION
     Dosage: 100MG 1/2 TAB NR
  9. FUROSEMIDE [Concomitant]
     Indication: DIURETIC THERAPY
     Dosage: 20MG NR
  10. PREDNISONE [Concomitant]
     Indication: MUSCLE DISORDER
  11. TAMSULOSIN [Concomitant]
     Indication: URINE ANALYSIS ABNORMAL
     Dosage: 0.4MG NR

REACTIONS (4)
  - Spinal column injury [Unknown]
  - Dysuria [Unknown]
  - Dysphonia [Unknown]
  - Off label use [Unknown]
